FAERS Safety Report 9957505 (Version 1)
Quarter: 2014Q1

REPORT INFORMATION
  Report Type: Report from Study
  Country: US (occurrence: US)
  Receive Date: 20140304
  Receipt Date: 20140304
  Transmission Date: 20141002
  Serious: No
  Sender: FDA-Public Use
  Company Number: US-ABBVIE-13P-163-1092801-00

PATIENT
  Sex: Female
  Weight: 53.57 kg

DRUGS (3)
  1. HUMIRA [Suspect]
     Indication: CROHN^S DISEASE
     Dates: start: 201302
  2. PERCOCET [Concomitant]
     Indication: ABDOMINAL PAIN UPPER
  3. TRAMADOL [Concomitant]
     Indication: ABDOMINAL PAIN

REACTIONS (3)
  - Cough [Unknown]
  - Nasopharyngitis [Recovering/Resolving]
  - Injection site urticaria [Recovered/Resolved]
